FAERS Safety Report 7906185-4 (Version None)
Quarter: 2011Q4

REPORT INFORMATION
  Report Type: 
  Country: None (occurrence: None)
  Receive Date: 20111109
  Receipt Date: 20111109
  Transmission Date: 20120403
  Serious: No
  Sender: FDA-Public Use
  Company Number: None

PATIENT
  Sex: Female
  Weight: 90.7194 kg

DRUGS (1)
  1. IMDUR [Suspect]
     Indication: BLOOD PRESSURE
     Dates: start: 20110701

REACTIONS (2)
  - COUGH [None]
  - SLEEP DISORDER [None]
